FAERS Safety Report 24639605 (Version 2)
Quarter: 2024Q4

REPORT INFORMATION
  Report Type: Spontaneous
  Country: US (occurrence: US)
  Receive Date: 20241119
  Receipt Date: 20241126
  Transmission Date: 20250114
  Serious: Yes (Other)
  Sender: ASTELLAS
  Company Number: US-ASTELLAS-2024-AER-018953

PATIENT
  Age: 38 Year
  Sex: Male

DRUGS (4)
  1. TACROLIMUS [Suspect]
     Active Substance: TACROLIMUS
     Indication: Renal transplant
     Route: 065
  2. TACROLIMUS [Suspect]
     Active Substance: TACROLIMUS
     Dosage: TARGET LEVEL WAS LOWERED
     Route: 065
  3. Mycophenolic acid (MPA) [Concomitant]
     Indication: Renal transplant
     Route: 065
  4. Mycophenolic acid (MPA) [Concomitant]
     Dosage: REDUCED DOSE
     Route: 065

REACTIONS (3)
  - Escherichia urinary tract infection [Unknown]
  - Malacoplakia [Unknown]
  - COVID-19 [Unknown]
